FAERS Safety Report 7246322-0 (Version None)
Quarter: 2011Q1

REPORT INFORMATION
  Report Type: 
  Country: None (occurrence: None)
  Receive Date: 20110126
  Receipt Date: 20101104
  Transmission Date: 20110831
  Serious: Yes (Hospitalization)
  Sender: FDA-Public Use
  Company Number: PHHY2009DE58742

PATIENT
  Sex: Female
  Weight: 46 kg

DRUGS (6)
  1. AMN107 [Suspect]
     Dosage: 400 MG DAILY
     Route: 048
     Dates: start: 20080704
  2. AMN107 [Suspect]
     Indication: CHRONIC MYELOID LEUKAEMIA
     Dosage: 800 MG DAILY
     Route: 048
     Dates: start: 20080619, end: 20080702
  3. AMN107 [Suspect]
     Dosage: 600 MG DAILY
     Route: 048
     Dates: start: 20090216, end: 20100110
  4. ASPIRIN [Concomitant]
     Dosage: UNK
     Dates: start: 20090918
  5. TORSEMIDE [Concomitant]
     Dosage: UNK
     Dates: start: 20090918
  6. METOPROLOL [Concomitant]
     Dosage: UNK
     Dates: start: 20090918

REACTIONS (3)
  - HEADACHE [None]
  - ARTHRALGIA [None]
  - ANGINA PECTORIS [None]
